FAERS Safety Report 8885797 (Version 2)
Quarter: 2013Q1

REPORT INFORMATION
  Report Type: Spontaneous
  Country: DE (occurrence: DE)
  Receive Date: 20121105
  Receipt Date: 20130116
  Transmission Date: 20140127
  Serious: Yes (Other)
  Sender: FDA-Public Use
  Company Number: DE-ELI_LILLY_AND_COMPANY-DE201210007268

PATIENT
  Age: 42 Year
  Sex: Male

DRUGS (3)
  1. CYMBALTA [Suspect]
     Indication: DEPRESSION
     Dosage: UNK, UNKNOWN
  2. CYMBALTA [Suspect]
     Dosage: 90 MG, UNKNOWN
     Route: 048
     Dates: start: 20121007, end: 20121013
  3. DIAZEPAM [Concomitant]
     Indication: ALCOHOL DETOXIFICATION
     Dosage: UNK, UNKNOWN

REACTIONS (5)
  - Blood creatine phosphokinase increased [Recovered/Resolved]
  - Glomerular filtration rate abnormal [Recovered/Resolved]
  - Renal pain [Unknown]
  - Chest pain [Unknown]
  - Myalgia [Unknown]
